FAERS Safety Report 6636422-8 (Version None)
Quarter: 2010Q1

REPORT INFORMATION
  Report Type: 
  Country: None (occurrence: None)
  Receive Date: 20100311
  Receipt Date: 20100301
  Transmission Date: 20100710
  Serious: Yes (Hospitalization)
  Sender: FDA-Public Use
  Company Number: 2010SP013334

PATIENT
  Age: 57 Year
  Sex: Female

DRUGS (4)
  1. PEG-INTRON [Suspect]
     Indication: HEPATITIS C
     Dosage: 80 MCG
     Dates: start: 20090326
  2. RIBAVIRIN [Suspect]
  3. METOPROLOL TARTRATE [Concomitant]
  4. FOLIC ACID [Concomitant]

REACTIONS (2)
  - EAR INFECTION [None]
  - EAR PAIN [None]
